FAERS Safety Report 7021109-2 (Version None)
Quarter: 2010Q3

REPORT INFORMATION
  Report Type: 
  Country: None (occurrence: None)
  Receive Date: 20100929
  Receipt Date: 20100922
  Transmission Date: 20110219
  Serious: Yes (Death, Hospitalization, Other)
  Sender: FDA-Public Use
  Company Number: PHHY2010US52911

PATIENT
  Sex: Male
  Weight: 65 kg

DRUGS (15)
  1. EXJADE [Suspect]
     Indication: MULTIPLE MYELOMA
     Dosage: 1000 MG, QD
     Route: 048
     Dates: start: 20090510
  2. EXJADE [Suspect]
     Dosage: 500 MG, QD
     Route: 048
     Dates: start: 20100707, end: 20100806
  3. LISINOPRIL AND HYDROCHLOROTHIAZIDE [Concomitant]
     Dosage: 20/12.5 MG DAILY
     Route: 048
  4. NIFEDIPINE [Concomitant]
     Dosage: 30 MG, QD
     Route: 048
  5. FLUOXETINE [Concomitant]
     Dosage: 20 MG, QD
     Route: 048
  6. DIGOXIN [Concomitant]
     Dosage: 125 UG, QD
     Route: 048
  7. MULTI-VITAMINS [Concomitant]
     Dosage: 1 TABLET DAILY
  8. PROCRIT [Concomitant]
     Dosage: 20000 U, UNK
  9. LANTUS [Concomitant]
     Dosage: 22 U, QD
     Route: 058
  10. LEVOTHYROXINE SODIUM [Concomitant]
     Dosage: 75 UG, QD
     Route: 048
  11. DEXAMETHASONE [Concomitant]
     Dosage: 4 MG ON MONDAY AND THURSDAY
     Route: 048
  12. DEXAMETHASONE [Concomitant]
     Dosage: 16 MG ON MONDAY AND THURSDAY
     Route: 048
  13. VELCADE [Concomitant]
  14. HUMAN INSULIN [Concomitant]
     Dosage: UNK
  15. PROZAC [Concomitant]
     Dosage: 20 MG/DAY
     Route: 048

REACTIONS (30)
  - ALANINE AMINOTRANSFERASE INCREASED [None]
  - AORTIC DILATATION [None]
  - ARTERIOSCLEROSIS [None]
  - ASPARTATE AMINOTRANSFERASE INCREASED [None]
  - ASTHENIA [None]
  - BACTERAEMIA [None]
  - BENIGN PROSTATIC HYPERPLASIA [None]
  - BLADDER CATHETERISATION [None]
  - BLOOD ALBUMIN INCREASED [None]
  - BLOOD BILIRUBIN INCREASED [None]
  - CHILLS [None]
  - CONFUSIONAL STATE [None]
  - CONTRACTED BLADDER [None]
  - CYSTITIS NONINFECTIVE [None]
  - DEHYDRATION [None]
  - DIARRHOEA [None]
  - INTERNATIONAL NORMALISED RATIO INCREASED [None]
  - LUNG DISORDER [None]
  - MALIGNANT NEOPLASM PROGRESSION [None]
  - MENTAL STATUS CHANGES [None]
  - MULTI-ORGAN FAILURE [None]
  - OSTEOPOROSIS [None]
  - PAIN [None]
  - PROTHROMBIN TIME PROLONGED [None]
  - PSEUDOMONAS INFECTION [None]
  - PYREXIA [None]
  - RALES [None]
  - RENAL FAILURE ACUTE [None]
  - STOOL ANALYSIS ABNORMAL [None]
  - UROSEPSIS [None]
